FAERS Safety Report 16856058 (Version 1)
Quarter: 2019Q3

REPORT INFORMATION
  Report Type: Spontaneous
  Country: US (occurrence: US)
  Receive Date: 20190926
  Receipt Date: 20190926
  Transmission Date: 20191005
  Serious: No
  Sender: FDA-Public Use
  Company Number: US-PFIZER INC-2019411367

PATIENT
  Age: 67 Year
  Sex: Male
  Weight: 93.89 kg

DRUGS (2)
  1. VITAMIN D2 [Concomitant]
     Active Substance: ERGOCALCIFEROL
     Indication: RED BLOOD CELL ABNORMALITY
     Dosage: 50000 IU, WEEKLY (ONE PILL EVERY WEEK ON FRIDAY)
     Dates: start: 20190913
  2. RETACRIT [Suspect]
     Active Substance: EPOETIN ALFA-EPBX
     Indication: ANAEMIA
     Dosage: 10000 IU, WEEKLY (10,000U ONCE WEEKLY INJECTS IT ON FRIDAY)
     Dates: start: 2019

REACTIONS (2)
  - Drug ineffective [Unknown]
  - Product dose omission [Unknown]

NARRATIVE: CASE EVENT DATE: 20190920
